FAERS Safety Report 4582983-2 (Version None)
Quarter: 2005Q1

REPORT INFORMATION
  Report Type: 
  Country: None (occurrence: None)
  Receive Date: 20050127
  Receipt Date: 20040921
  Transmission Date: 20050727
  Serious: No
  Sender: FDA-Public Use
  Company Number: USA040978855

PATIENT
  Age: 23 Year
  Sex: Male

DRUGS (2)
  1. STRATTERA [Suspect]
     Indication: ATTENTION DEFICIT/HYPERACTIVITY DISORDER
     Dosage: 80 MG/1 DAY
     Dates: start: 20040919
  2. RITALIN [Concomitant]

REACTIONS (5)
  - FATIGUE [None]
  - MEDICATION ERROR [None]
  - PARAESTHESIA [None]
  - PILOERECTION [None]
  - SOMNOLENCE [None]
